FAERS Safety Report 8724195 (Version 3)
Quarter: 2012Q4

REPORT INFORMATION
  Report Type: 
  Country: US (occurrence: US)
  Receive Date: 20120815
  Receipt Date: 20120903
  Transmission Date: 20130627
  Serious: Yes (Hospitalization)
  Sender: FDA-Public Use
  Company Number: US-PFIZER INC-2012197343

PATIENT
  Age: 66 Year
  Sex: Female
  Weight: 59 kg

DRUGS (2)
  1. CELEBREX [Suspect]
     Indication: ARTHRITIS
     Dosage: 200 mg, 1x/day
     Route: 048
  2. ATIVAN [Concomitant]
     Dosage: .5 mg, UNK

REACTIONS (4)
  - Fall [Unknown]
  - Hip fracture [Unknown]
  - Pain [Unknown]
  - Hearing impaired [Unknown]
